FAERS Safety Report 6943522 (Version 2)
Quarter: 2013Q1

REPORT INFORMATION
  Report Type: Spontaneous
  Country: CN (occurrence: CN)
  Receive Date: 20090318
  Receipt Date: 20130129
  Transmission Date: 20140127
  Serious: Yes (Other)
  Sender: FDA-Public Use
  Company Number: PHBS2007CN18648

PATIENT
  Age: 23 Year
  Sex: Female
  Weight: 50 kg

DRUGS (2)
  1. SEBIVO [Suspect]
     Indication: HEPATITIS B
     Dosage: 600 MG, QD
     Route: 048
     Dates: start: 20071024, end: 200803
  2. SEBIVO [Suspect]
     Dosage: 600 MG, QD
     Route: 048
     Dates: start: 20090404, end: 20100705

REACTIONS (6)
  - Premature delivery [Unknown]
  - Myocardial ischaemia [Recovering/Resolving]
  - Asthma [Unknown]
  - Chest discomfort [Unknown]
  - Fatigue [Unknown]
  - Exposure during pregnancy [Unknown]
